FAERS Safety Report 20159856 (Version 3)
Quarter: 2022Q1

REPORT INFORMATION
  Report Type: Report from Study
  Country: US (occurrence: US)
  Receive Date: 20211208
  Receipt Date: 20220226
  Transmission Date: 20220423
  Serious: Yes (Hospitalization, Other)
  Sender: FDA-Public Use
  Company Number: US-AMGEN-USACT2021190305

PATIENT
  Age: 71 Year
  Sex: Female
  Weight: 161 kg

DRUGS (9)
  1. BLINATUMOMAB [Suspect]
     Active Substance: BLINATUMOMAB
     Indication: B precursor type acute leukaemia
     Dosage: UNK
     Route: 065
     Dates: start: 202101, end: 202102
  2. BLINATUMOMAB [Suspect]
     Active Substance: BLINATUMOMAB
     Dosage: UNK
     Route: 065
     Dates: start: 202105, end: 202106
  3. BLINATUMOMAB [Suspect]
     Active Substance: BLINATUMOMAB
     Dosage: UNK (TOTAL DOSE: 357 MICROGRAM)
     Route: 065
     Dates: start: 20211030
  4. IPILIMUMAB [Suspect]
     Active Substance: IPILIMUMAB
     Indication: B precursor type acute leukaemia
     Dosage: UNK (TOTAL DOSE: 92 MG)
     Route: 065
     Dates: start: 20211109, end: 20211109
  5. NIVOLUMAB [Suspect]
     Active Substance: NIVOLUMAB
     Indication: B precursor type acute leukaemia
     Dosage: UNK (TOTAL DOSE: 80 MG)
     Route: 065
     Dates: start: 20211109, end: 20211109
  6. INOTUZUMAB OZOGAMICIN [Concomitant]
     Active Substance: INOTUZUMAB OZOGAMICIN
     Dosage: UNK
     Dates: start: 202010, end: 202012
  7. INOTUZUMAB OZOGAMICIN [Concomitant]
     Active Substance: INOTUZUMAB OZOGAMICIN
     Dosage: UNK
     Dates: start: 202107, end: 202109
  8. METHOTREXATE [Concomitant]
     Active Substance: METHOTREXATE
     Indication: Central nervous system lymphoma
     Dosage: UNK
     Dates: start: 201904, end: 201910
  9. METHOTREXATE [Concomitant]
     Active Substance: METHOTREXATE
     Dosage: UNK
     Dates: start: 202102, end: 202103

REACTIONS (7)
  - Muscular weakness [Not Recovered/Not Resolved]
  - Febrile neutropenia [Recovered/Resolved]
  - Oedema peripheral [Recovered/Resolved]
  - Confusional state [Not Recovered/Not Resolved]
  - Aphasia [Not Recovered/Not Resolved]
  - Hypotension [Recovered/Resolved]
  - Pyrexia [Recovered/Resolved]

NARRATIVE: CASE EVENT DATE: 20211110
